FAERS Safety Report 12063657 (Version 1)
Quarter: 2016Q1

REPORT INFORMATION
  Report Type: Spontaneous
  Country: US (occurrence: US)
  Receive Date: 20160210
  Receipt Date: 20160210
  Transmission Date: 20160526
  Serious: No
  Sender: FDA-Public Use
  Company Number: US-ALLERGAN-1502483US

PATIENT
  Sex: Female

DRUGS (4)
  1. JUVEDERM [Suspect]
     Active Substance: HYALURONIC ACID
     Indication: SKIN WRINKLING
     Dosage: UNK, SINGLE
     Dates: start: 20150123, end: 20150123
  2. LISINOPRIL. [Concomitant]
     Active Substance: LISINOPRIL
  3. BOTOX [Suspect]
     Active Substance: ONABOTULINUMTOXINA
     Indication: SKIN WRINKLING
     Dosage: UNK UNK, SINGLE
     Route: 030
     Dates: start: 20150123, end: 20150123
  4. ESTRADIOL. [Concomitant]
     Active Substance: ESTRADIOL

REACTIONS (3)
  - Injection site discolouration [Recovering/Resolving]
  - Haematoma [Recovering/Resolving]
  - Injection site bruising [Recovering/Resolving]
